FAERS Safety Report 4928139-2 (Version None)
Quarter: 2006Q1

REPORT INFORMATION
  Report Type: 
  Country: None (occurrence: None)
  Receive Date: 20060223
  Receipt Date: 20060203
  Transmission Date: 20060701
  Serious: Yes (Death, Other)
  Sender: FDA-Public Use
  Company Number: GB200602000937

PATIENT
  Age: 58 Year
  Sex: Male

DRUGS (2)
  1. GEMCITABINE HYDROCHLORIDE (GEMCITABINE HYDROCHLORIDE) [Suspect]
     Indication: LUNG SQUAMOUS CELL CARCINOMA STAGE UNSPECIFIED
     Dosage: 1000 MG/M2, WEEKLY (1/W)
  2. THERAPEUTIC RADIOPHARMACEUTICALS [Concomitant]

REACTIONS (8)
  - LUNG NEOPLASM [None]
  - METASTASES TO CENTRAL NERVOUS SYSTEM [None]
  - MUSCLE NECROSIS [None]
  - MUSCLE SWELLING [None]
  - MYALGIA [None]
  - NEOPLASM PROGRESSION [None]
  - PLEURITIC PAIN [None]
  - RECALL PHENOMENON [None]
